FAERS Safety Report 5471383-9 (Version None)
Quarter: 2007Q3

REPORT INFORMATION
  Report Type: 
  Country: None (occurrence: None)
  Receive Date: 20070928
  Receipt Date: 20060918
  Transmission Date: 20080115
  Serious: No
  Sender: FDA-Public Use
  Company Number: US-BRISTOL-MYERS SQUIBB COMPANY-13513007

PATIENT
  Age: 67 Year
  Sex: Male
  Weight: 230 kg

DRUGS (1)
  1. DEFINITY [Suspect]
     Indication: STRESS ECHOCARDIOGRAM
     Route: 042
     Dates: start: 20060915, end: 20060915

REACTIONS (4)
  - DYSPNOEA [None]
  - RASH [None]
  - TACHYCARDIA [None]
  - TREMOR [None]
